FAERS Safety Report 26130130 (Version 2)
Quarter: 2025Q4

REPORT INFORMATION
  Report Type: Spontaneous
  Country: GB (occurrence: GB)
  Receive Date: 20251208
  Receipt Date: 20251226
  Transmission Date: 20260118
  Serious: Yes (Other)
  Sender: BRISTOL-MYERS SQUIBB COMPANY
  Company Number: GB-BRISTOL-MYERS SQUIBB COMPANY-2025-163761

PATIENT
  Age: 54 Year
  Sex: Female
  Weight: 59.87 kg

DRUGS (2)
  1. ELIQUIS [Suspect]
     Active Substance: APIXABAN
     Indication: COVID-19 immunisation
  2. COMIRNATY (TOZINAMERAN) [Suspect]
     Active Substance: TOZINAMERAN
     Indication: Product used for unknown indication
     Dosage: GREY CAP KP.2

REACTIONS (4)
  - Seizure [Unknown]
  - Haemorrhagic stroke [Unknown]
  - Social problem [Unknown]
  - Off label use [Unknown]
